FAERS Safety Report 24146624 (Version 10)
Quarter: 2025Q4

REPORT INFORMATION
  Report Type: Spontaneous
  Country: CA (occurrence: CA)
  Receive Date: 20240729
  Receipt Date: 20251016
  Transmission Date: 20260118
  Serious: Yes (Other)
  Sender: CELLTRION
  Company Number: CA-CELLTRION INC.-2022CA022616

PATIENT

DRUGS (38)
  1. TRUXIMA [Suspect]
     Active Substance: RITUXIMAB-ABBS
     Indication: Rheumatoid arthritis
     Dosage: 1000 MILLIGRAM (INFUSION#2)
     Route: 042
     Dates: start: 20220802
  2. TRUXIMA [Suspect]
     Active Substance: RITUXIMAB-ABBS
     Dosage: SECOND INFUSION
     Dates: start: 20220816
  3. TRUXIMA [Suspect]
     Active Substance: RITUXIMAB-ABBS
     Dosage: 1000 MG (INFUSION#3
     Route: 042
     Dates: start: 20220802
  4. TRUXIMA [Suspect]
     Active Substance: RITUXIMAB-ABBS
     Dosage: 1000 MG (INFUSION #4
     Route: 042
     Dates: start: 20220802
  5. TRUXIMA [Suspect]
     Active Substance: RITUXIMAB-ABBS
     Dosage: 1000 MG, INFUSION#5
     Route: 042
     Dates: start: 20220802
  6. TRUXIMA [Suspect]
     Active Substance: RITUXIMAB-ABBS
     Dosage: 1000 MG
     Route: 042
     Dates: start: 20220808
  7. TRUXIMA [Suspect]
     Active Substance: RITUXIMAB-ABBS
     Dosage: 1000 MG, DAY 1 AND 15
     Route: 042
     Dates: start: 20220802
  8. TRUXIMA [Suspect]
     Active Substance: RITUXIMAB-ABBS
     Dosage: 1000 MG (INFUSION#7)
     Route: 042
     Dates: start: 20220802
  9. TRUXIMA [Suspect]
     Active Substance: RITUXIMAB-ABBS
     Dosage: 1000 MG (INFUSION#9)
     Route: 042
     Dates: start: 20220802
  10. TRUXIMA [Suspect]
     Active Substance: RITUXIMAB-ABBS
     Dosage: 1000 MG (INFUSION #10)
     Route: 042
     Dates: start: 20220802
  11. TRUXIMA [Suspect]
     Active Substance: RITUXIMAB-ABBS
     Dosage: 1000 MG, DAY 1 AND 15
     Route: 042
     Dates: start: 20220802
  12. TRUXIMA [Suspect]
     Active Substance: RITUXIMAB-ABBS
     Dosage: 1000 MG DAY 1 + 15
     Route: 042
     Dates: start: 20220802
  13. TRUXIMA [Suspect]
     Active Substance: RITUXIMAB-ABBS
     Dosage: 1000 MG DAY 1 + 15
     Route: 042
     Dates: start: 20220802
  14. ACETAMINOPHEN [Concomitant]
     Active Substance: ACETAMINOPHEN
     Indication: Premedication
     Dosage: 650 MG
     Route: 048
  15. BENADRYL [Concomitant]
     Active Substance: DIPHENHYDRAMINE HYDROCHLORIDE
     Indication: Premedication
     Dosage: 50 MG
     Route: 048
  16. METHYLPREDNISOLONE [Concomitant]
     Active Substance: METHYLPREDNISOLONE
     Indication: Premedication
     Dosage: 100 MILLIGRAM
  17. SOLU-MEDROL [Concomitant]
     Active Substance: METHYLPREDNISOLONE SODIUM SUCCINATE
     Indication: Premedication
     Dosage: 100 MG
     Route: 042
  18. TICAGRELOR [Concomitant]
     Active Substance: TICAGRELOR
     Dosage: 60 MG, OD
  19. TICAGRELOR [Concomitant]
     Active Substance: TICAGRELOR
     Dosage: 60 MG PO BID
     Route: 048
  20. REPATHA [Concomitant]
     Active Substance: EVOLOCUMAB
     Dosage: UNK
  21. ATORVASTATIN [Concomitant]
     Active Substance: ATORVASTATIN
     Dosage: 80 MG PO DAILY
     Route: 048
  22. OMEPRAZOLE [Concomitant]
     Active Substance: OMEPRAZOLE
     Dosage: 20 MG PO DAILY
     Route: 048
  23. APIXABAN [Concomitant]
     Active Substance: APIXABAN
     Dosage: 5 MG PO BID
     Route: 048
  24. PERINDOPRIL [Concomitant]
     Active Substance: PERINDOPRIL
     Dosage: 2MG PO DAILY
     Route: 048
  25. COLCHICINE [Concomitant]
     Active Substance: COLCHICINE
     Dosage: 0.6 MG PO DAILY
     Route: 048
  26. LEFLUNOMIDE [Concomitant]
     Active Substance: LEFLUNOMIDE
     Dosage: 10 MG PO DAILY
     Route: 048
  27. HYDROXYCHLOROQUINE [Concomitant]
     Active Substance: HYDROXYCHLOROQUINE
     Dosage: 300 MG PO DAILY
     Route: 048
  28. .ALPHA.-TOCOPHEROL [Concomitant]
     Active Substance: .ALPHA.-TOCOPHEROL
     Dosage: 400 IU PO DAILY
     Route: 048
  29. CALCIUM [Concomitant]
     Active Substance: CALCIUM
     Dosage: 400 MG PO Q2DAYS
     Route: 048
  30. VITAMIN B12 [Concomitant]
     Active Substance: CYANOCOBALAMIN
     Dosage: 1000 MCG PO DAILY
     Route: 048
  31. VITAMIN D3 [Concomitant]
     Active Substance: CHOLECALCIFEROL
     Dosage: 1000 MCG PO DAILY
     Route: 048
  32. MAGNESIUM [Concomitant]
     Active Substance: MAGNESIUM
     Dosage: 250 MG PO
     Route: 048
  33. KELP [IODINE] [Concomitant]
     Dosage: 1 CAP. DAILY
  34. FERROUS FUMARATE [Concomitant]
     Active Substance: FERROUS FUMARATE
     Dosage: 300 MG PO Q. 2 DAYS
     Route: 048
  35. EZETIMIBE [Concomitant]
     Active Substance: EZETIMIBE
     Dosage: 10 MG PO DAILY
     Route: 048
  36. REPATHA [Concomitant]
     Active Substance: EVOLOCUMAB
     Dosage: SC Q. 2 WEEKS
     Route: 058
  37. ISOSORBIDE DINITRATE [Concomitant]
     Active Substance: ISOSORBIDE DINITRATE
     Dosage: PRN
  38. FLECAINIDE [Concomitant]
     Active Substance: FLECAINIDE
     Dosage: 250 MG (HIGH DOSE)

REACTIONS (32)
  - Post procedural haemorrhage [Unknown]
  - Rheumatoid arthritis [Not Recovered/Not Resolved]
  - Blood pressure systolic increased [Unknown]
  - Atrial fibrillation [Recovered/Resolved]
  - Tooth abscess [Recovering/Resolving]
  - Lower respiratory tract infection [Recovered/Resolved]
  - Blood triglycerides abnormal [Unknown]
  - Contusion [Unknown]
  - Gingival oedema [Unknown]
  - Haematoma [Unknown]
  - Hyperlipidaemia [Recovering/Resolving]
  - International normalised ratio increased [Unknown]
  - Loose tooth [Unknown]
  - Malaise [Recovered/Resolved]
  - Poor venous access [Unknown]
  - Respiratory rate increased [Recovered/Resolved]
  - Ventricular extrasystoles [Unknown]
  - Dry mouth [Not Recovered/Not Resolved]
  - Condition aggravated [Unknown]
  - Arthritis [Unknown]
  - Cardiac disorder [Unknown]
  - Dyspnoea [Recovered/Resolved]
  - Nausea [Recovered/Resolved]
  - Pyrexia [Recovered/Resolved]
  - Tachycardia [Recovered/Resolved]
  - Diarrhoea [Recovered/Resolved]
  - Bursitis [Not Recovered/Not Resolved]
  - Urinary tract infection [Unknown]
  - Migraine [Recovered/Resolved]
  - Therapeutic response shortened [Not Recovered/Not Resolved]
  - Intentional dose omission [Unknown]
  - Off label use [Unknown]

NARRATIVE: CASE EVENT DATE: 20220803
